FAERS Safety Report 17754877 (Version 1)
Quarter: 2020Q2

REPORT INFORMATION
  Report Type: Spontaneous
  Country: US (occurrence: US)
  Receive Date: 20200507
  Receipt Date: 20200507
  Transmission Date: 20200714
  Serious: No
  Sender: FDA-Public Use
  Company Number: US-GILEAD-2020-0464140

PATIENT
  Sex: Female

DRUGS (15)
  1. MEGESTROL ACETATE. [Concomitant]
     Active Substance: MEGESTROL ACETATE
  2. HYDROCODONE [Concomitant]
     Active Substance: HYDROCODONE
  3. SULINDAC. [Concomitant]
     Active Substance: SULINDAC
  4. METOPROLOLSUCCINAT AAA [Concomitant]
  5. EPCLUSA [Suspect]
     Active Substance: SOFOSBUVIR\VELPATASVIR
     Indication: CHRONIC HEPATITIS C
     Dosage: 2 DOSAGE FORM, QD
     Route: 048
  6. PREDNISONE. [Concomitant]
     Active Substance: PREDNISONE
  7. OLANZAPINE. [Concomitant]
     Active Substance: OLANZAPINE
  8. ACAMPROSATE CALCIUM. [Concomitant]
     Active Substance: ACAMPROSATE CALCIUM
  9. CLONIDINE. [Concomitant]
     Active Substance: CLONIDINE
  10. QUETIAPINE FUMARATE. [Concomitant]
     Active Substance: QUETIAPINE FUMARATE
  11. ACETAMINOPHEN AND CODEINE [Concomitant]
     Active Substance: ACETAMINOPHEN\CODEINE PHOSPHATE
  12. EPCLUSA [Suspect]
     Active Substance: SOFOSBUVIR\VELPATASVIR
     Dosage: 1 DOSAGE FORM, QD
     Route: 048
     Dates: start: 20200415
  13. MIRTAZAPINE. [Concomitant]
     Active Substance: MIRTAZAPINE
  14. PAROXETINE. [Concomitant]
     Active Substance: PAROXETINE
  15. PROPRANOLOL HYDROCHLORIDE. [Concomitant]
     Active Substance: PROPRANOLOL HYDROCHLORIDE

REACTIONS (1)
  - Accidental overdose [Recovered/Resolved]
